FAERS Safety Report 18539214 (Version 1)
Quarter: 2020Q4

REPORT INFORMATION
  Report Type: Spontaneous
  Country: US (occurrence: US)
  Receive Date: 20201124
  Receipt Date: 20201124
  Transmission Date: 20210114
  Serious: No
  Sender: FDA-Public Use
  Company Number: US-TEVA-2020-US-1852343

PATIENT
  Age: 74 Year
  Sex: Female
  Weight: 90.26 kg

DRUGS (1)
  1. OXYBUTYNIN. [Suspect]
     Active Substance: OXYBUTYNIN CHLORIDE
     Route: 065

REACTIONS (2)
  - Dysarthria [Unknown]
  - Dry mouth [Unknown]

NARRATIVE: CASE EVENT DATE: 202010
